FAERS Safety Report 11775328 (Version 1)
Quarter: 2015Q4

REPORT INFORMATION
  Report Type: Spontaneous
  Country: US (occurrence: US)
  Receive Date: 20151125
  Receipt Date: 20151125
  Transmission Date: 20160304
  Serious: No
  Sender: FDA-Public Use
  Company Number: US-ACTELION-A-NJ2015-118713

PATIENT
  Age: 50 Year
  Sex: Female

DRUGS (2)
  1. VELETRI [Suspect]
     Active Substance: EPOPROSTENOL
     Indication: PULMONARY HYPERTENSION
     Dosage: 8.32 NG/KG, PER MIN
     Route: 042
     Dates: start: 20150529
  2. VELETRI [Suspect]
     Active Substance: EPOPROSTENOL
     Dosage: 4.99 NG/KG, PER MIN
     Route: 042
     Dates: start: 20150529

REACTIONS (6)
  - Pain in extremity [Unknown]
  - Catheter site discharge [Unknown]
  - Headache [Unknown]
  - Pain in jaw [Unknown]
  - Catheter site pruritus [Unknown]
  - Catheter site erythema [Unknown]
